FAERS Safety Report 6143319-9 (Version None)
Quarter: 2009Q2

REPORT INFORMATION
  Report Type: 
  Country: None (occurrence: None)
  Receive Date: 20090403
  Receipt Date: 20090330
  Transmission Date: 20091009
  Serious: Yes (Hospitalization, Disabling)
  Sender: FDA-Public Use
  Company Number: B0561744A

PATIENT
  Sex: Male

DRUGS (9)
  1. VALTREX [Suspect]
     Indication: HERPES ZOSTER
     Dosage: 1000MG THREE TIMES PER DAY
     Route: 048
     Dates: start: 20090218, end: 20090221
  2. LOSARTAN WITH HYDROCHLOROTHIAZIDE [Concomitant]
     Route: 048
     Dates: end: 20090221
  3. WARFARIN SODIUM [Concomitant]
     Indication: ATRIAL FIBRILLATION
     Dosage: 2.5MG PER DAY
     Route: 048
     Dates: end: 20090221
  4. ASPIRIN [Concomitant]
     Indication: ATRIAL FIBRILLATION
     Dosage: 100MG PER DAY
     Route: 048
     Dates: end: 20090221
  5. HYPEN [Concomitant]
     Dosage: 800MG PER DAY
     Route: 048
     Dates: end: 20090221
  6. VASOLAN [Concomitant]
     Indication: ATRIAL FIBRILLATION
     Dosage: 160MG PER DAY
     Route: 048
     Dates: end: 20090221
  7. MUCOSTA [Concomitant]
     Dosage: 400MG PER DAY
     Route: 048
     Dates: end: 20090221
  8. CRESTOR [Concomitant]
     Dosage: 2.5MG PER DAY
     Route: 048
  9. LUPRAC [Concomitant]
     Dosage: 8MG PER DAY
     Route: 048

REACTIONS (7)
  - ALTERED STATE OF CONSCIOUSNESS [None]
  - DIZZINESS [None]
  - RENAL FAILURE ACUTE [None]
  - RENAL FAILURE CHRONIC [None]
  - RESPIRATORY DISORDER [None]
  - RESTLESSNESS [None]
  - URINE OUTPUT DECREASED [None]
